FAERS Safety Report 12176446 (Version 1)
Quarter: 2016Q1

REPORT INFORMATION
  Report Type: Report from Study
  Country: US (occurrence: US)
  Receive Date: 20160314
  Receipt Date: 20160314
  Transmission Date: 20160526
  Serious: Yes (Hospitalization)
  Sender: FDA-Public Use
  Company Number: US-ACTELION-A-US2015-128957

PATIENT
  Age: 39 Year
  Sex: Male

DRUGS (2)
  1. MACITENTAN [Suspect]
     Active Substance: MACITENTAN
     Indication: PULMONARY ARTERIAL HYPERTENSION
     Dosage: 10 MG, QD
     Route: 048
     Dates: start: 201504, end: 20151119
  2. MACITENTAN [Suspect]
     Active Substance: MACITENTAN
     Dosage: 10 MG, QD
     Route: 048

REACTIONS (10)
  - Cardiac disorder [Recovering/Resolving]
  - Left ventricular dysfunction [Unknown]
  - Hypotension [Recovered/Resolved]
  - Fluid retention [Recovered/Resolved]
  - Pulmonary hypertension [Recovering/Resolving]
  - Dyspnoea [Recovered/Resolved]
  - Urine output decreased [Recovered/Resolved]
  - Acute kidney injury [Recovered/Resolved]
  - Blood pressure systolic decreased [Recovered/Resolved]
  - Cardiogenic shock [Recovered/Resolved]

NARRATIVE: CASE EVENT DATE: 20151130
